FAERS Safety Report 10344011 (Version 2)
Quarter: 2014Q3

REPORT INFORMATION
  Report Type: Spontaneous
  Country: US (occurrence: US)
  Receive Date: 20140728
  Receipt Date: 20140728
  Transmission Date: 20150326
  Serious: Yes (Other)
  Sender: FDA-Public Use
  Company Number: US-AMGEN-USASP2013019433

PATIENT
  Age: 45 Year
  Sex: Male
  Weight: 79.37 kg

DRUGS (2)
  1. ENBREL [Suspect]
     Active Substance: ETANERCEPT
     Indication: PRODUCT USED FOR UNKNOWN INDICATION
     Dosage: 25 MG, 2 TIMES/WK
     Route: 058
     Dates: start: 2000
  2. TYLENOL [Concomitant]
     Active Substance: ACETAMINOPHEN
     Dosage: 325 MG, UNK

REACTIONS (6)
  - Depression [Unknown]
  - Injection site bruising [Unknown]
  - Abdominal pain upper [Unknown]
  - Psoriatic arthropathy [Unknown]
  - Iritis [Unknown]
  - Arthralgia [Unknown]
